FAERS Safety Report 9514544 (Version 2)
Quarter: 2013Q3

REPORT INFORMATION
  Report Type: Spontaneous
  Country: FR (occurrence: FR)
  Receive Date: 20130911
  Receipt Date: 20130911
  Transmission Date: 20140515
  Serious: Yes (Other)
  Sender: FDA-Public Use
  Company Number: FR-BRISTOL-MYERS SQUIBB COMPANY-19153733

PATIENT
  Age: 66 Year
  Sex: Male
  Weight: 63 kg

DRUGS (2)
  1. ELISOR [Suspect]
     Indication: HYPERCHOLESTEROLAEMIA
     Route: 048
     Dates: start: 2010, end: 2013
  2. ALTEIS [Concomitant]
     Indication: HYPERTENSION
     Dosage: 1 DF : 20 UNITS NOS.
     Route: 048
     Dates: start: 2011

REACTIONS (1)
  - Epistaxis [Unknown]
